FAERS Safety Report 19990749 (Version 5)
Quarter: 2022Q2

REPORT INFORMATION
  Report Type: Report from Study
  Country: US (occurrence: US)
  Receive Date: 20211025
  Receipt Date: 20220506
  Transmission Date: 20220721
  Serious: Yes (Other)
  Sender: FDA-Public Use
  Company Number: US-NOVARTISTESTPH-NVSC2021US195594

PATIENT
  Sex: Male

DRUGS (1)
  1. ENTRESTO [Suspect]
     Active Substance: SACUBITRIL\VALSARTAN
     Indication: Product used for unknown indication
     Dosage: 1 DOSAGE FORM, BID 24/26 MG (SACUBITRIL 24.3 MG, VALSARTAN 25.7 MG)
     Route: 048
     Dates: start: 202104

REACTIONS (3)
  - Muscle rupture [Unknown]
  - Arthralgia [Unknown]
  - Carpal tunnel syndrome [Unknown]
